FAERS Safety Report 20858763 (Version 1)
Quarter: 2022Q2

REPORT INFORMATION
  Report Type: Spontaneous
  Country: US (occurrence: None)
  Receive Date: 20220522
  Receipt Date: 20220522
  Transmission Date: 20220721
  Serious: No
  Sender: FDA-Public Use
  Company Number: 2022A183147

PATIENT
  Age: 721 Month
  Sex: Female
  Weight: 90.7 kg

DRUGS (1)
  1. SYMBICORT [Suspect]
     Active Substance: BUDESONIDE\FORMOTEROL FUMARATE DIHYDRATE
     Indication: Chronic obstructive pulmonary disease
     Dosage: SYMBICORT 160/4.5 MCG, 120 ACTUATION INHALER, TWO PUFFS TWICE A DAY,
     Route: 055
     Dates: start: 202201

REACTIONS (5)
  - Skin injury [Unknown]
  - Haemorrhage [Recovered/Resolved]
  - Pain [Unknown]
  - Lip injury [Not Recovered/Not Resolved]
  - Wrong technique in device usage process [Not Recovered/Not Resolved]

NARRATIVE: CASE EVENT DATE: 20220101
